FAERS Safety Report 19745971 (Version 1)
Quarter: 2021Q3

REPORT INFORMATION
  Report Type: Spontaneous
  Country: US (occurrence: US)
  Receive Date: 20210824
  Receipt Date: 20210824
  Transmission Date: 20211014
  Serious: Yes (Disabling)
  Sender: FDA-Public Use
  Company Number: None

PATIENT
  Age: 65 Year
  Sex: Female
  Weight: 63 kg

DRUGS (3)
  1. MULTIVITAMIN [Concomitant]
     Active Substance: VITAMINS
  2. XARELTO [Suspect]
     Active Substance: RIVAROXABAN
     Indication: ARRHYTHMIA
     Dosage: ?          QUANTITY:1 TABLET(S);?
     Route: 048
     Dates: start: 20210801, end: 20210815
  3. MINERALS [Concomitant]
     Active Substance: MINERALS

REACTIONS (9)
  - Blepharospasm [None]
  - Urine abnormality [None]
  - Tremor [None]
  - Headache [None]
  - Gastrooesophageal reflux disease [None]
  - Insomnia [None]
  - Constipation [None]
  - Muscle twitching [None]
  - Nausea [None]
